FAERS Safety Report 7889706-X (Version None)
Quarter: 2011Q4

REPORT INFORMATION
  Report Type: 
  Country: None (occurrence: None)
  Receive Date: 20111103
  Receipt Date: 20110926
  Transmission Date: 20120403
  Serious: No
  Sender: FDA-Public Use
  Company Number: US-BAYER-2011-093489

PATIENT
  Age: 64 Year
  Sex: Male
  Weight: 64 kg

DRUGS (1)
  1. ASPIRIN [Suspect]
     Indication: BACK PAIN
     Dosage: 1 DF, QD
     Dates: start: 20110924, end: 20110924

REACTIONS (2)
  - ABDOMINAL DISCOMFORT [None]
  - GLOSSODYNIA [None]
